FAERS Safety Report 20819340 (Version 1)
Quarter: 2022Q2

REPORT INFORMATION
  Report Type: Spontaneous
  Country: US (occurrence: None)
  Receive Date: 20220511
  Receipt Date: 20220511
  Transmission Date: 20220721
  Serious: Yes (Hospitalization)
  Sender: FDA-Public Use
  Company Number: None

PATIENT
  Age: 77 Year
  Sex: Male

DRUGS (5)
  1. ASTAGRAF XL [Suspect]
     Active Substance: TACROLIMUS
     Indication: Renal transplant
     Dosage: FREQUENCY : DAILY;?
     Route: 048
     Dates: start: 20160121
  2. MYCOPHENOLATE MOFETIL [Suspect]
     Active Substance: MYCOPHENOLATE MOFETIL
     Indication: Renal transplant
     Dosage: FREQUENCY : TWICE A DAY;?
     Route: 048
     Dates: start: 20160121
  3. PANTOPRAZOLE SODIUM [Concomitant]
     Active Substance: PANTOPRAZOLE SODIUM
     Dates: start: 20160121
  4. stool softener 100mg softgel [Concomitant]
     Dates: start: 20160121
  5. PREDNISONE [Concomitant]
     Active Substance: PREDNISONE
     Dates: start: 20160121

REACTIONS (4)
  - Nephrectomy [None]
  - Adrenalectomy [None]
  - Renal procedural complication [None]
  - Iatrogenic injury [None]

NARRATIVE: CASE EVENT DATE: 20220511
